FAERS Safety Report 6250232-5 (Version None)
Quarter: 2009Q2

REPORT INFORMATION
  Report Type: 
  Country: None (occurrence: None)
  Receive Date: 20090630
  Receipt Date: 20090618
  Transmission Date: 20091009
  Serious: Yes (Hospitalization)
  Sender: FDA-Public Use
  Company Number: DE-RANBAXY-2009RR-22410

PATIENT
  Age: 61 Year
  Sex: Female
  Weight: 80 kg

DRUGS (4)
  1. IBUPROFEN [Suspect]
     Indication: NECK PAIN
     Dosage: 400 MG, TID
     Route: 048
     Dates: start: 20081110, end: 20081112
  2. AMLODIPINE [Concomitant]
     Indication: HYPERTENSION
     Dosage: 5 MG, BID
     Route: 048
     Dates: start: 20081114
  3. OMEBETA [Concomitant]
     Indication: REFLUX OESOPHAGITIS
     Dosage: 20 MG, UNK
     Route: 048
     Dates: start: 20020101
  4. RAMIPRIL [Concomitant]
     Indication: HYPERTENSION
     Dosage: 2.5 MG, QD
     Route: 048
     Dates: start: 20020101

REACTIONS (1)
  - MELAENA [None]
